FAERS Safety Report 5777291-8 (Version None)
Quarter: 2008Q2

REPORT INFORMATION
  Report Type: 
  Country: None (occurrence: None)
  Receive Date: 20080618
  Receipt Date: 20080616
  Transmission Date: 20081010
  Serious: Yes (Hospitalization)
  Sender: FDA-Public Use
  Company Number: FR-BRISTOL-MYERS SQUIBB COMPANY-14230643

PATIENT
  Age: 57 Year
  Sex: Female

DRUGS (6)
  1. COUMADIN [Suspect]
     Dosage: ALTERNATING WITH ? /D SUBSTITUTED WITH ANOTHER PRODUCT ON 25-APR-2008
     Dates: end: 20080523
  2. CLAMOXYL [Suspect]
     Dates: start: 20080416, end: 20080423
  3. CIPROFLOXACIN HCL [Suspect]
     Indication: URINARY TRACT INFECTION
     Dates: start: 20080418, end: 20080425
  4. DEPAKENE [Concomitant]
  5. NEXIUM [Concomitant]
  6. XANAX [Concomitant]

REACTIONS (7)
  - ANAEMIA [None]
  - DYSPNOEA [None]
  - HAEMATURIA [None]
  - INTERNATIONAL NORMALISED RATIO INCREASED [None]
  - PYREXIA [None]
  - VULVOVAGINITIS [None]
  - WHITE BLOOD CELL COUNT INCREASED [None]
